FAERS Safety Report 17852211 (Version 2)
Quarter: 2021Q2

REPORT INFORMATION
  Report Type: Report from Study
  Country: US (occurrence: US)
  Receive Date: 20200602
  Receipt Date: 20210526
  Transmission Date: 20210717
  Serious: Yes (Other)
  Sender: FDA-Public Use
  Company Number: US-JNJFOC-20200529447

PATIENT

DRUGS (3)
  1. INVEGA SUSTENNA [Suspect]
     Active Substance: PALIPERIDONE PALMITATE
     Dosage: DAY 8 DOSE
     Route: 030
  2. INVEGA SUSTENNA [Suspect]
     Active Substance: PALIPERIDONE PALMITATE
     Indication: SCHIZOPHRENIA
     Route: 030
  3. INVEGA SUSTENNA [Suspect]
     Active Substance: PALIPERIDONE PALMITATE
     Dosage: WEEKS 5,9,13,17 AND 21
     Route: 030

REACTIONS (24)
  - Overdose [Unknown]
  - Alcohol poisoning [Unknown]
  - Bone deformity [Unknown]
  - Drug ineffective [Unknown]
  - Schizophrenia [Unknown]
  - Abdominal pain upper [Unknown]
  - Hypotension [Unknown]
  - Galactorrhoea [Unknown]
  - Oromandibular dystonia [Unknown]
  - Dyskinesia [Unknown]
  - Somnolence [Unknown]
  - Weight increased [Unknown]
  - Akathisia [Unknown]
  - Suicide attempt [Unknown]
  - Parkinsonism [Unknown]
  - Depression [Unknown]
  - Blood prolactin increased [Unknown]
  - Sedation [Unknown]
  - Suicidal ideation [Unknown]
  - Dystonia [Unknown]
  - Headache [Unknown]
  - Dizziness [Unknown]
  - Treatment noncompliance [Unknown]
  - Injection site pain [Unknown]
